FAERS Safety Report 5842723-3 (Version None)
Quarter: 2008Q3

REPORT INFORMATION
  Report Type: 
  Country: None (occurrence: None)
  Receive Date: 20080808
  Receipt Date: 20080730
  Transmission Date: 20090109
  Serious: Yes (Hospitalization)
  Sender: FDA-Public Use
  Company Number: 230124K07USA

PATIENT
  Age: 45 Year
  Sex: Female
  Weight: 83.9154 kg

DRUGS (3)
  1. REBIF [Suspect]
     Indication: MULTIPLE SCLEROSIS
     Dosage: 44 MCG, 3 IN 1 WEEKS, SUBCUTANEOUS
     Route: 058
     Dates: start: 20030207, end: 20070101
  2. VIBE LIQUID VITAMIN SUPPLEMENT (MULTIPLE VITAMINS) [Concomitant]
  3. FRAMPDINE (INVESTIGATIONAL DRUG) [Concomitant]

REACTIONS (2)
  - ARTHROPATHY [None]
  - MUSCLE SPASTICITY [None]
